FAERS Safety Report 17637297 (Version 1)
Quarter: 2020Q2

REPORT INFORMATION
  Report Type: Spontaneous
  Country: US (occurrence: US)
  Receive Date: 20200406
  Receipt Date: 20200406
  Transmission Date: 20200713
  Serious: No
  Sender: FDA-Public Use
  Company Number: None

PATIENT
  Age: 56 Year
  Sex: Male

DRUGS (1)
  1. SUTENT [Suspect]
     Active Substance: SUNITINIB MALATE
     Route: 048
     Dates: start: 202003

REACTIONS (6)
  - Nausea [None]
  - Ageusia [None]
  - Lip pain [None]
  - Glossodynia [None]
  - Anosmia [None]
  - Dyspepsia [None]

NARRATIVE: CASE EVENT DATE: 20200406
